FAERS Safety Report 13073567 (Version 3)
Quarter: 2018Q3

REPORT INFORMATION
  Report Type: Spontaneous
  Country: US (occurrence: US)
  Receive Date: 20161229
  Receipt Date: 20180904
  Transmission Date: 20181010
  Serious: Yes (Death, Other)
  Sender: FDA-Public Use
  Company Number: US-ASTRAZENECA-2016SF36265

PATIENT
  Age: 23431 Day
  Sex: Female
  Weight: 72.6 kg

DRUGS (26)
  1. ATROPINE. [Concomitant]
     Active Substance: ATROPINE
  2. ONGLYZA [Concomitant]
     Active Substance: SAXAGLIPTIN HYDROCHLORIDE
     Route: 048
     Dates: start: 20111011
  3. EPINEPHRINE. [Concomitant]
     Active Substance: EPINEPHRINE
  4. PREMARIN [Concomitant]
     Active Substance: ESTROGENS, CONJUGATED
     Dosage: 0.625MG UNKNOWN
     Route: 048
  5. AMIODARONE [Concomitant]
     Active Substance: AMIODARONE
  6. DEXTROSE. [Concomitant]
     Active Substance: DEXTROSE
  7. ELAVIL [Concomitant]
     Active Substance: AMITRIPTYLINE HYDROCHLORIDE
     Route: 048
     Dates: start: 20091123
  8. CYCLOBENZAPRINE. [Concomitant]
     Active Substance: CYCLOBENZAPRINE
     Dosage: 10.0MG EVERY 8 ? 12 HOURS
     Route: 048
     Dates: start: 20110714
  9. CIPRO [Concomitant]
     Active Substance: CIPROFLOXACIN HYDROCHLORIDE
     Route: 048
     Dates: start: 20110913
  10. GABAPENTIN. [Concomitant]
     Active Substance: GABAPENTIN
     Route: 048
     Dates: start: 20091111
  11. ATENOLOL. [Concomitant]
     Active Substance: ATENOLOL
     Route: 048
     Dates: start: 20100209
  12. NEXIUM [Suspect]
     Active Substance: ESOMEPRAZOLE MAGNESIUM
     Indication: GASTROOESOPHAGEAL REFLUX DISEASE
     Route: 048
  13. CIPROFLOXACIN. [Concomitant]
     Active Substance: CIPROFLOXACIN
     Route: 048
     Dates: start: 20120127
  14. LEVOPHED [Concomitant]
     Active Substance: NOREPINEPHRINE BITARTRATE
  15. RANITIDINE. [Concomitant]
     Active Substance: RANITIDINE
     Route: 048
     Dates: start: 20091005
  16. NORVASC [Concomitant]
     Active Substance: AMLODIPINE BESYLATE
     Dates: start: 20100427
  17. DEXILANT [Concomitant]
     Active Substance: DEXLANSOPRAZOLE
     Indication: PEPTIC ULCER
     Dosage: 60.0MG UNKNOWN
     Dates: start: 20110628
  18. INSULIN [Concomitant]
     Active Substance: INSULIN NOS
  19. PHOSLO [Concomitant]
     Active Substance: CALCIUM ACETATE
     Dosage: 667.0MG UNKNOWN
     Route: 048
     Dates: start: 20110517
  20. COUMADINE [Concomitant]
     Active Substance: WARFARIN SODIUM
     Route: 048
     Dates: start: 20091210
  21. DIOVAN [Concomitant]
     Active Substance: VALSARTAN
     Route: 048
     Dates: start: 20100427
  22. SENSIPAR [Concomitant]
     Active Substance: CINACALCET HYDROCHLORIDE
     Indication: PEPTIC ULCER
     Dosage: 30.0MG UNKNOWN
     Dates: start: 20110913
  23. PRILOSEC [Suspect]
     Active Substance: OMEPRAZOLE MAGNESIUM
     Indication: GASTROOESOPHAGEAL REFLUX DISEASE
     Route: 048
  24. SODIUM BICARBONATE. [Concomitant]
     Active Substance: SODIUM BICARBONATE
  25. CALCIUM CHLORIDE. [Concomitant]
     Active Substance: CALCIUM CHLORIDE
  26. LASIX [Concomitant]
     Active Substance: FUROSEMIDE
     Dates: start: 20110714

REACTIONS (3)
  - Renal disorder [Fatal]
  - Nephrogenic anaemia [Unknown]
  - End stage renal disease [Unknown]

NARRATIVE: CASE EVENT DATE: 20100609
